FAERS Safety Report 11172753 (Version 2)
Quarter: 2015Q3

REPORT INFORMATION
  Report Type: Spontaneous
  Country: US (occurrence: US)
  Receive Date: 20150608
  Receipt Date: 20150716
  Transmission Date: 20151125
  Serious: Yes (Hospitalization, Other)
  Sender: FDA-Public Use
  Company Number: US-CELGENEUS-USA-2015056196

PATIENT
  Age: 74 Year
  Sex: Female
  Weight: 60.38 kg

DRUGS (2)
  1. VELCADE [Suspect]
     Active Substance: BORTEZOMIB
     Indication: PRODUCT USED FOR UNKNOWN INDICATION
     Route: 065
  2. REVLIMID [Suspect]
     Active Substance: LENALIDOMIDE
     Indication: PLASMA CELL MYELOMA
     Dosage: 10 MILLIGRAM
     Route: 048
     Dates: start: 20150331, end: 20150407

REACTIONS (3)
  - Rash [Unknown]
  - Pruritus [Unknown]
  - Skin hyperpigmentation [Unknown]

NARRATIVE: CASE EVENT DATE: 20150508
